FAERS Safety Report 7618377-2 (Version None)
Quarter: 2011Q3

REPORT INFORMATION
  Report Type: 
  Country: None (occurrence: None)
  Receive Date: 20110718
  Receipt Date: 20110714
  Transmission Date: 20111222
  Serious: Yes (Other)
  Sender: FDA-Public Use
  Company Number: PHHY2011GR36857

PATIENT
  Age: 54 Year
  Sex: Female

DRUGS (1)
  1. EXTAVIA [Suspect]
     Dosage: 0.75 ML, UNK

REACTIONS (3)
  - MONOPLEGIA [None]
  - PYREXIA [None]
  - BONE PAIN [None]
